FAERS Safety Report 4661964-4 (Version None)
Quarter: 2005Q2

REPORT INFORMATION
  Report Type: 
  Country: None (occurrence: None)
  Receive Date: 20050512
  Receipt Date: 20050506
  Transmission Date: 20051028
  Serious: Yes (Other)
  Sender: FDA-Public Use
  Company Number: HQWYE003803OCT03

PATIENT
  Age: 52 Year
  Sex: Female

DRUGS (3)
  1. PREMPRO [Suspect]
     Dosage: ORAL
     Route: 048
  2. PREMARIN [Suspect]
     Dosage: ORAL
     Route: 048
  3. PROVERA [Suspect]

REACTIONS (6)
  - ASTHENIA [None]
  - BREAST CANCER FEMALE [None]
  - BREAST CANCER METASTATIC [None]
  - MYOCARDIAL INFARCTION [None]
  - RADIATION SKIN INJURY [None]
  - VENOUS STENOSIS [None]
